FAERS Safety Report 22736633 (Version 4)
Quarter: 2023Q4

REPORT INFORMATION
  Report Type: Report from Study
  Country: US (occurrence: US)
  Receive Date: 20230721
  Receipt Date: 20231104
  Transmission Date: 20240109
  Serious: Yes (Hospitalization, Other)
  Sender: FDA-Public Use
  Company Number: US-002147023-NVSC2023US159414

PATIENT
  Sex: Male

DRUGS (1)
  1. ENTRESTO [Suspect]
     Active Substance: SACUBITRIL\VALSARTAN
     Indication: Product used for unknown indication
     Dosage: 1 DOSAGE FORM, BID
     Route: 048

REACTIONS (8)
  - Pancreatitis [Unknown]
  - Ill-defined disorder [Unknown]
  - Lung neoplasm malignant [Unknown]
  - Throat clearing [Unknown]
  - Weight decreased [Unknown]
  - Dyspnoea [Unknown]
  - Fatigue [Unknown]
  - Product dispensing error [Unknown]
